FAERS Safety Report 7372447-5 (Version None)
Quarter: 2011Q1

REPORT INFORMATION
  Report Type: 
  Country: None (occurrence: None)
  Receive Date: 20110324
  Receipt Date: 20110314
  Transmission Date: 20110831
  Serious: Yes (Death)
  Sender: FDA-Public Use
  Company Number: US-EISAI INC-E7389-01134-SPO-US

PATIENT
  Age: 65 Year
  Sex: Female

DRUGS (3)
  1. PROCHLORPERAZINE [Concomitant]
     Indication: NAUSEA
     Dates: start: 20101230, end: 20110111
  2. HALAVEN [Suspect]
     Indication: BREAST CANCER
     Dosage: 2.28MG (1.4MG/M2)
     Route: 042
     Dates: start: 20101230, end: 20110106
  3. ZOFRAN [Concomitant]
     Dosage: UNKNOWN

REACTIONS (2)
  - NAUSEA [None]
  - SUDDEN DEATH [None]
